FAERS Safety Report 9026341 (Version 1)
Quarter: 2012Q4

REPORT INFORMATION
  Report Type: Spontaneous
  Country: US (occurrence: None)
  Receive Date: 20121217
  Receipt Date: 20121217
  Transmission Date: 20130627
  Serious: Yes (Life-Threatening, Hospitalization, Disabling)
  Sender: FDA-Public Use
  Company Number: None

PATIENT
  Age: 50 Year
  Sex: Male

DRUGS (1)
  1. NUCYNTA [Suspect]
     Indication: PAIN
     Dosage: 50 mg   Twice daily   oral
06-12  to  09-12
     Route: 048
     Dates: start: 201206, end: 201209

REACTIONS (5)
  - Skin odour abnormal [None]
  - Memory impairment [None]
  - Respiratory disorder [None]
  - Hyperhidrosis [None]
  - Memory impairment [None]
